FAERS Safety Report 21825034 (Version 2)
Quarter: 2023Q1

REPORT INFORMATION
  Report Type: Spontaneous
  Country: US (occurrence: US)
  Receive Date: 20230105
  Receipt Date: 20230118
  Transmission Date: 20230418
  Serious: Yes (Hospitalization)
  Sender: FDA-Public Use
  Company Number: US-TEVA-2022-US-2841384

PATIENT
  Age: 64 Year
  Sex: Male

DRUGS (11)
  1. LEUPROLIDE [Suspect]
     Active Substance: LEUPROLIDE
     Indication: Hormone-refractory prostate cancer
     Dosage: 40MG EVERY 4 MONTHS (QUARTERLY)
     Route: 030
     Dates: start: 20181226
  2. LEUPROLIDE [Suspect]
     Active Substance: LEUPROLIDE
     Indication: Prostate cancer metastatic
  3. ENZALUTAMIDE [Suspect]
     Active Substance: ENZALUTAMIDE
     Indication: Hormone-refractory prostate cancer
     Dosage: 160 MILLIGRAM DAILY;
     Route: 065
     Dates: start: 20181127
  4. ENZALUTAMIDE [Suspect]
     Active Substance: ENZALUTAMIDE
     Indication: Prostate cancer metastatic
  5. SIPULEUCEL-T [Suspect]
     Active Substance: SIPULEUCEL-T
     Indication: Hormone-refractory prostate cancer
     Route: 050
     Dates: start: 20190610
  6. SIPULEUCEL-T [Suspect]
     Active Substance: SIPULEUCEL-T
     Indication: Prostate cancer metastatic
     Route: 050
     Dates: start: 20190624
  7. SIPULEUCEL-T [Suspect]
     Active Substance: SIPULEUCEL-T
     Dosage: RECEIVED LAST DOSE
     Route: 050
     Dates: start: 20190722
  8. LISINOPRIL [Concomitant]
     Active Substance: LISINOPRIL
     Indication: Hypertension
     Dosage: 10 MILLIGRAM DAILY;
     Route: 065
  9. LISINOPRIL [Concomitant]
     Active Substance: LISINOPRIL
     Dosage: 20 MILLIGRAM DAILY;
     Route: 065
  10. DENOSUMAB [Concomitant]
     Active Substance: DENOSUMAB
     Indication: Hormone-refractory prostate cancer
     Route: 058
     Dates: start: 20190527
  11. DENOSUMAB [Concomitant]
     Active Substance: DENOSUMAB
     Indication: Prostate cancer metastatic

REACTIONS (14)
  - Cardiomyopathy [Recovering/Resolving]
  - Hepatojugular reflux [Recovering/Resolving]
  - Cardiac murmur [Recovering/Resolving]
  - Rales [Recovering/Resolving]
  - Defect conduction intraventricular [Recovering/Resolving]
  - Electrocardiogram T wave abnormal [Recovering/Resolving]
  - Ejection fraction decreased [Recovering/Resolving]
  - Mitral valve incompetence [Recovering/Resolving]
  - Diastolic dysfunction [Recovering/Resolving]
  - Aortic valve incompetence [Recovering/Resolving]
  - Left ventricular dilatation [Recovering/Resolving]
  - Hypokinesia [Recovering/Resolving]
  - Atrial fibrillation [Recovering/Resolving]
  - Cardiac failure acute [Recovering/Resolving]

NARRATIVE: CASE EVENT DATE: 20190625
